FAERS Safety Report 11937717 (Version 1)
Quarter: 2016Q1

REPORT INFORMATION
  Report Type: Report from Study
  Country: US (occurrence: US)
  Receive Date: 20160122
  Receipt Date: 20160122
  Transmission Date: 20160526
  Serious: No
  Sender: FDA-Public Use
  Company Number: US-AMGEN-USASL2016006180

PATIENT
  Age: 52 Year
  Sex: Female

DRUGS (1)
  1. ENBREL [Suspect]
     Active Substance: ETANERCEPT
     Indication: PSORIASIS
     Dosage: 50 MG, 2 TIMES/WK
     Route: 065
     Dates: start: 201601

REACTIONS (5)
  - Underdose [Unknown]
  - Injection site extravasation [Unknown]
  - Needle issue [Unknown]
  - Injection site discomfort [Unknown]
  - Headache [Unknown]

NARRATIVE: CASE EVENT DATE: 20160118
